FAERS Safety Report 7141869-X (Version None)
Quarter: 2010Q4

REPORT INFORMATION
  Report Type: 
  Country: None (occurrence: None)
  Receive Date: 20101207
  Receipt Date: 20101201
  Transmission Date: 20110411
  Serious: Yes (Death)
  Sender: FDA-Public Use
  Company Number: BR-ROCHE-745670

PATIENT
  Age: 13 Year
  Sex: Female

DRUGS (1)
  1. TOCILIZUMAB [Suspect]
     Indication: RHEUMATOID ARTHRITIS
     Dosage: FORM: INFUSIONS. THE PATIENT RECEIVED FIVE INFUSIONS.
     Route: 042
     Dates: start: 20100520, end: 20101001

REACTIONS (1)
  - DYSPNOEA [None]
